FAERS Safety Report 9191139 (Version 1)
Quarter: 2013Q1

REPORT INFORMATION
  Report Type: Spontaneous
  Country: US (occurrence: US)
  Receive Date: 20130326
  Receipt Date: 20130326
  Transmission Date: 20140127
  Serious: No
  Sender: FDA-Public Use
  Company Number: US-B.I. PHARMACEUTICALS,INC./RIDGEFIELD-2013-BI-07521BP

PATIENT
  Sex: Female

DRUGS (2)
  1. SPIRIVA [Suspect]
     Indication: ASTHMA
     Dosage: 18 MCG
     Route: 055
     Dates: start: 201302
  2. SPIRIVA [Suspect]
     Route: 048
     Dates: start: 20130318, end: 20130318

REACTIONS (2)
  - Incorrect route of drug administration [Recovered/Resolved]
  - Peak expiratory flow rate increased [Not Recovered/Not Resolved]
